FAERS Safety Report 6255209-1 (Version None)
Quarter: 2009Q3

REPORT INFORMATION
  Report Type: 
  Country: None (occurrence: None)
  Receive Date: 20090702
  Receipt Date: 20090522
  Transmission Date: 20100115
  Serious: No
  Sender: FDA-Public Use
  Company Number: US-BAYER-200922972NA

PATIENT
  Age: 9 Year
  Sex: Female
  Weight: 29 kg

DRUGS (2)
  1. ULTRAVIST 370 [Suspect]
     Indication: COMPUTERISED TOMOGRAM ABDOMEN
     Dosage: TOTAL DAILY DOSE: 50 ML  UNIT DOSE: 50 ML
     Route: 042
     Dates: start: 20090522, end: 20090522
  2. ADDERALL XR 20 [Concomitant]
     Dosage: AS USED: 10 MG

REACTIONS (1)
  - URTICARIA [None]
